FAERS Safety Report 7484702-9 (Version None)
Quarter: 2011Q2

REPORT INFORMATION
  Report Type: 
  Country: None (occurrence: None)
  Receive Date: 20110517
  Receipt Date: 20110510
  Transmission Date: 20111010
  Serious: Yes (Life-Threatening, Hospitalization, Other)
  Sender: FDA-Public Use
  Company Number: JP-ROCHE-662277

PATIENT
  Sex: Male
  Weight: 60 kg

DRUGS (32)
  1. TANATRIL [Concomitant]
     Dosage: DRUG REPORTED AS: TANATRIL(IMIDAPRIL HYDROCHLORIDE)
     Route: 048
     Dates: start: 20090422
  2. ZETIA [Concomitant]
     Route: 048
     Dates: start: 20090903
  3. FASTIC [Concomitant]
     Route: 048
     Dates: start: 20080229
  4. SEIBULE [Concomitant]
     Route: 048
     Dates: start: 20100827
  5. ACTEMRA [Suspect]
     Route: 041
     Dates: start: 20091002, end: 20091002
  6. LANSOPRAZOLE [Concomitant]
     Route: 048
     Dates: start: 20090422
  7. ALLEGRA [Concomitant]
     Dosage: DRUG REPORTED AS: ALLEGRA(FEXOFENADINE HYDROCHLORIDE)
     Route: 048
     Dates: start: 20090422
  8. AUROTHIOMALATE [Concomitant]
     Dosage: DRUG: SHIOSOL(SODIUM AUROTHIOMALATE)
     Route: 030
     Dates: start: 20100219
  9. ACTEMRA [Suspect]
     Route: 041
     Dates: start: 20100910
  10. INDOMETHACIN SODIUM [Concomitant]
     Dosage: DOSE FORM: SUSTAINED RELEASE CAPSULE
     Route: 048
     Dates: start: 20071004
  11. BENET [Concomitant]
     Dosage: DRUG REPORTED AS: BENET(SODIUM RISEDRONATE HYDRATE)
     Route: 048
     Dates: start: 20090422
  12. BASEN [Concomitant]
     Route: 048
     Dates: start: 20080229
  13. AMLODIPINE [Concomitant]
     Dosage: DRUG REPORTED AS: AMLODIN OD(AMLODIPINE BESILATE)
     Route: 048
     Dates: start: 20071004
  14. TANATRIL [Concomitant]
     Route: 048
     Dates: start: 20071004
  15. CADUET [Concomitant]
     Route: 048
     Dates: start: 20110304
  16. AMARYL [Concomitant]
     Route: 048
     Dates: start: 20100821
  17. ACTEMRA [Suspect]
     Indication: RHEUMATOID ARTHRITIS
     Route: 041
     Dates: start: 20090612, end: 20090612
  18. ACTEMRA [Suspect]
     Route: 041
     Dates: start: 20090710, end: 20090710
  19. BENET [Concomitant]
     Route: 048
     Dates: start: 20071004
  20. PREDNISOLONE [Suspect]
     Route: 048
     Dates: start: 20090520, end: 20090710
  21. BREDININ [Suspect]
     Indication: RHEUMATOID ARTHRITIS
     Route: 048
     Dates: start: 20100219
  22. PROGRAF [Concomitant]
     Route: 048
     Dates: start: 20110204
  23. ACTEMRA [Suspect]
     Route: 041
     Dates: start: 20090807, end: 20090807
  24. PREDNISOLONE [Suspect]
     Route: 048
     Dates: start: 20090711
  25. ASPIRIN [Concomitant]
     Dosage: DOSE FORM: ENTERIC COATING DRUG
     Route: 048
     Dates: start: 20071004
  26. OMEPRAL [Concomitant]
     Route: 048
     Dates: start: 20071004
  27. ACTEMRA [Suspect]
     Route: 041
     Dates: start: 20090903, end: 20090903
  28. ACTEMRA [Suspect]
     Route: 041
     Dates: start: 20091030, end: 20091030
  29. ACTEMRA [Suspect]
     Route: 041
     Dates: start: 20091127, end: 20100723
  30. PREDNISOLONE [Suspect]
     Indication: RHEUMATOID ARTHRITIS
     Dosage: DOSE FORM: PERORAL AGENT
     Route: 048
     Dates: start: 20071004, end: 20090519
  31. GARENOXACIN MESYLATE [Suspect]
     Dosage: DRUG REPORTED AS: GENINAX
     Route: 048
  32. CALBLOCK [Concomitant]
     Route: 048
     Dates: start: 20110304

REACTIONS (5)
  - CELLULITIS [None]
  - HYPERTRIGLYCERIDAEMIA [None]
  - PNEUMONIA [None]
  - HYPERCHOLESTEROLAEMIA [None]
  - DIABETES MELLITUS [None]
